FAERS Safety Report 4382288-9 (Version None)
Quarter: 2004Q2

REPORT INFORMATION
  Report Type: 
  Country: None (occurrence: None)
  Receive Date: 20040621
  Receipt Date: 20040621
  Transmission Date: 20050107
  Serious: Yes (Life-Threatening)
  Sender: FDA-Public Use
  Company Number: None

PATIENT
  Sex: Male
  Weight: 4.96 kg

DRUGS (1)
  1. BABY BIG BOTULISM IMMUNE GLOBULIN IV HUMAN [Suspect]
     Indication: BOTULISM
     Dosage: 230 MG IV X ONE DOSE
     Route: 042
     Dates: start: 20040618

REACTIONS (2)
  - HEART RATE DECREASED [None]
  - HYPOXIA [None]
